FAERS Safety Report 23856796 (Version 2)
Quarter: 2024Q3

REPORT INFORMATION
  Report Type: Spontaneous
  Country: AU (occurrence: AU)
  Receive Date: 20240515
  Receipt Date: 20240713
  Transmission Date: 20241016
  Serious: Yes (Other)
  Sender: SANOFI AVENTIS
  Company Number: AU-SA-SAC20240513001484

PATIENT
  Age: 41 Year
  Sex: Female
  Weight: 126 kg

DRUGS (1)
  1. DUPIXENT [Suspect]
     Active Substance: DUPILUMAB
     Indication: Dermatitis atopic
     Dosage: 300 MG, QOW
     Route: 058
     Dates: start: 202301

REACTIONS (2)
  - Cutaneous T-cell lymphoma [Recovered/Resolved]
  - Lymphomatoid papulosis [Recovering/Resolving]

NARRATIVE: CASE EVENT DATE: 20230101
